FAERS Safety Report 19212872 (Version 1)
Quarter: 2021Q2

REPORT INFORMATION
  Report Type: Spontaneous
  Country: NL (occurrence: NL)
  Receive Date: 20210504
  Receipt Date: 20210504
  Transmission Date: 20210717
  Serious: Yes (Hospitalization, Other)
  Sender: FDA-Public Use
  Company Number: NL-ALVOGEN-2021-ALVOGEN-116944

PATIENT
  Sex: Male
  Weight: 1.12 kg

DRUGS (12)
  1. FENTANYL. [Suspect]
     Active Substance: FENTANYL
     Indication: NEONATAL RESPIRATORY FAILURE
  2. DOPAMINE [Suspect]
     Active Substance: DOPAMINE HYDROCHLORIDE
     Indication: NEONATAL RESPIRATORY FAILURE
  3. CAFFEINE. [Suspect]
     Active Substance: CAFFEINE
     Indication: NEONATAL RESPIRATORY FAILURE
  4. AMPICILLIN [Suspect]
     Active Substance: AMPICILLIN
     Indication: NEONATAL RESPIRATORY FAILURE
  5. CEFTRIAXONE. [Suspect]
     Active Substance: CEFTRIAXONE
     Indication: NEONATAL RESPIRATORY FAILURE
  6. FENTANYL. [Suspect]
     Active Substance: FENTANYL
     Indication: NEONATAL RESPIRATORY FAILURE
  7. DOPAMINE [Suspect]
     Active Substance: DOPAMINE HYDROCHLORIDE
     Indication: NEONATAL RESPIRATORY FAILURE
  8. GENTAMICIN. [Suspect]
     Active Substance: GENTAMICIN
     Indication: NEONATAL RESPIRATORY FAILURE
  9. CAFFEINE. [Suspect]
     Active Substance: CAFFEINE
     Indication: NEONATAL RESPIRATORY FAILURE
  10. GENTAMICIN. [Suspect]
     Active Substance: GENTAMICIN
     Indication: NEONATAL RESPIRATORY FAILURE
  11. CEFTRIAXONE. [Suspect]
     Active Substance: CEFTRIAXONE
     Indication: NEONATAL RESPIRATORY FAILURE
  12. AMPICILLIN [Suspect]
     Active Substance: AMPICILLIN
     Indication: NEONATAL RESPIRATORY FAILURE

REACTIONS (5)
  - Infusion site extravasation [Recovered/Resolved with Sequelae]
  - Arterial occlusive disease [Recovered/Resolved with Sequelae]
  - Arterial thrombosis [Recovered/Resolved with Sequelae]
  - Infusion site injury [Recovered/Resolved with Sequelae]
  - Dry gangrene [Recovered/Resolved with Sequelae]
